FAERS Safety Report 25768234 (Version 1)
Quarter: 2025Q3

REPORT INFORMATION
  Report Type: Spontaneous
  Country: US (occurrence: US)
  Receive Date: 20250905
  Receipt Date: 20250905
  Transmission Date: 20251020
  Serious: No
  Sender: DOMPE FARMACEUTICI
  Company Number: US-FARMAPROD-202506-1953

PATIENT
  Sex: Male

DRUGS (10)
  1. OXERVATE [Suspect]
     Active Substance: CENEGERMIN-BKBJ
     Indication: Neurotrophic keratopathy
     Route: 047
     Dates: start: 20250430
  2. COMBIGAN [Concomitant]
     Active Substance: BRIMONIDINE TARTRATE\TIMOLOL MALEATE
  3. RHOPRESSA [Concomitant]
     Active Substance: NETARSUDIL MESYLATE
  4. FLOMAX [Concomitant]
     Active Substance: TAMSULOSIN HYDROCHLORIDE
  5. PRAVASTATIN SODIUM [Concomitant]
     Active Substance: PRAVASTATIN SODIUM
  6. MOXIFLOXACIN [Concomitant]
     Active Substance: MOXIFLOXACIN
  7. DIFLUPREDNATE [Concomitant]
     Active Substance: DIFLUPREDNATE
  8. CYCLOSPORINE [Concomitant]
     Active Substance: CYCLOSPORINE
  9. LUMIGAN [Concomitant]
     Active Substance: BIMATOPROST
  10. DORZOLAMIDE HYDROCHLORIDE [Concomitant]
     Active Substance: DORZOLAMIDE HYDROCHLORIDE

REACTIONS (3)
  - Eye irritation [Unknown]
  - Eyelid irritation [Unknown]
  - Photophobia [Unknown]
